FAERS Safety Report 4602618-X (Version None)
Quarter: 2005Q1

REPORT INFORMATION
  Report Type: 
  Country: None (occurrence: None)
  Receive Date: 20050307
  Receipt Date: 20050223
  Transmission Date: 20050727
  Serious: Yes (Hospitalization)
  Sender: FDA-Public Use
  Company Number: US-2004-031819

PATIENT
  Age: 18 Year
  Sex: Male
  Weight: 99.8 kg

DRUGS (1)
  1. BETASERON [Suspect]
     Indication: RELAPSING-REMITTING MULTIPLE SCLEROSIS
     Dosage: 8 MIU EVERY 2D , SUBCUTANEOUS
     Route: 058
     Dates: start: 20040801, end: 20041101

REACTIONS (18)
  - ANTICONVULSANT DRUG LEVEL DECREASED [None]
  - ASTHENIA [None]
  - BLOOD CREATINE PHOSPHOKINASE INCREASED [None]
  - BLOOD GLUCOSE INCREASED [None]
  - BLOOD THYROID STIMULATING HORMONE DECREASED [None]
  - CEREBRAL DISORDER [None]
  - CONDITION AGGRAVATED [None]
  - DYSARTHRIA [None]
  - ELECTROENCEPHALOGRAM ABNORMAL [None]
  - GRAND MAL CONVULSION [None]
  - INJECTION SITE SWELLING [None]
  - LEUKOENCEPHALOMYELITIS [None]
  - MONOCYTE COUNT INCREASED [None]
  - MULTIPLE SCLEROSIS [None]
  - NECK PAIN [None]
  - NERVOUS SYSTEM DISORDER [None]
  - OEDEMA PERIPHERAL [None]
  - PAIN IN EXTREMITY [None]
